FAERS Safety Report 11458235 (Version 1)
Quarter: 2015Q3

REPORT INFORMATION
  Report Type: Report from Study
  Country: MY (occurrence: MY)
  Receive Date: 20150904
  Receipt Date: 20150904
  Transmission Date: 20151125
  Serious: Yes (Other)
  Sender: FDA-Public Use
  Company Number: PHHY2012MY137888

PATIENT
  Age: 52 Year
  Sex: Female

DRUGS (2)
  1. TASIGNA [Suspect]
     Active Substance: NILOTINIB
     Indication: BLAST CRISIS IN MYELOGENOUS LEUKAEMIA
     Dosage: 600 MG, QD (400 MG AM AND 200 MG PM)
     Route: 048
     Dates: start: 20100811
  2. METFORMIN [Concomitant]
     Active Substance: METFORMIN HYDROCHLORIDE
     Indication: PRODUCT USED FOR UNKNOWN INDICATION
     Dosage: 1 G, BID
     Route: 065

REACTIONS (6)
  - Bundle branch block right [Unknown]
  - Electrocardiogram T wave inversion [Unknown]
  - Electrocardiogram QT prolonged [Unknown]
  - Abscess limb [Recovered/Resolved]
  - Therapeutic response decreased [Unknown]
  - Cellulitis [Recovered/Resolved]

NARRATIVE: CASE EVENT DATE: 201009
